FAERS Safety Report 19680200 (Version 6)
Quarter: 2025Q3

REPORT INFORMATION
  Report Type: Other
  Country: US (occurrence: US)
  Receive Date: 20210810
  Receipt Date: 20250814
  Transmission Date: 20251020
  Serious: Yes (Other)
  Sender: NEUROCRINE BIOSCIENCES
  Company Number: US-NEUROCRINE BIOSCIENCES INC.-2021NBI04109

PATIENT
  Age: 73 Year
  Sex: Female

DRUGS (42)
  1. INGREZZA [Suspect]
     Active Substance: VALBENAZINE DITOSYLATE
     Indication: Tardive dyskinesia
     Route: 048
  2. INGREZZA [Suspect]
     Active Substance: VALBENAZINE DITOSYLATE
     Route: 048
     Dates: start: 20240516
  3. INGREZZA [Suspect]
     Active Substance: VALBENAZINE DITOSYLATE
     Route: 048
     Dates: start: 20220216, end: 20240515
  4. INGREZZA [Suspect]
     Active Substance: VALBENAZINE DITOSYLATE
     Route: 048
     Dates: start: 20220124, end: 20220215
  5. INGREZZA [Suspect]
     Active Substance: VALBENAZINE DITOSYLATE
     Route: 048
     Dates: start: 20210904, end: 20220123
  6. INGREZZA [Suspect]
     Active Substance: VALBENAZINE DITOSYLATE
     Route: 048
     Dates: start: 20210404, end: 20210902
  7. INGREZZA [Suspect]
     Active Substance: VALBENAZINE DITOSYLATE
     Route: 048
     Dates: start: 20210101
  8. AUVELITY [Suspect]
     Active Substance: BUPROPION HYDROCHLORIDE\DEXTROMETHORPHAN HYDROBROMIDE
     Indication: Product used for unknown indication
     Route: 065
  9. TRIHEXYPHENIDYL [Suspect]
     Active Substance: TRIHEXYPHENIDYL
     Indication: Restlessness
     Route: 065
  10. TRIHEXYPHENIDYL [Suspect]
     Active Substance: TRIHEXYPHENIDYL
     Indication: Agitation
  11. TRIHEXYPHENIDYL [Suspect]
     Active Substance: TRIHEXYPHENIDYL
     Indication: Anxiety
  12. BENZTROPINE [Suspect]
     Active Substance: BENZTROPINE
     Indication: Product used for unknown indication
     Route: 065
  13. GABAPENTIN [Suspect]
     Active Substance: GABAPENTIN
     Indication: Restlessness
     Route: 065
  14. GABAPENTIN [Suspect]
     Active Substance: GABAPENTIN
     Indication: Akathisia
  15. PROLIA [Suspect]
     Active Substance: DENOSUMAB
     Indication: Bone density abnormal
     Route: 065
  16. ATARAX [Concomitant]
     Active Substance: HYDROXYZINE HYDROCHLORIDE
  17. VITAMIN E [Concomitant]
     Active Substance: .ALPHA.-TOCOPHEROL
  18. MELATONIN [Concomitant]
     Active Substance: MELATONIN
  19. ROSUVASTATIN [Concomitant]
     Active Substance: ROSUVASTATIN
  20. COQ10 [ASCORBIC ACID;BETACAROTENE;CUPRIC OXIDE;MANGANESE SULFATE;SELEN [Concomitant]
  21. VITAMIN D NOS [Concomitant]
     Active Substance: CHOLECALCIFEROL\ERGOCALCIFEROL
  22. VITAMIN B COMPLEX [Concomitant]
     Active Substance: CYANOCOBALAMIN\DEXPANTHENOL\NIACINAMIDE\PYRIDOXINE HYDROCHLORIDE\RIBOFLAVIN 5^-PHOSPHATE SODIUM\THIA
  23. METHOTREXATE [Concomitant]
     Active Substance: METHOTREXATE
  24. CALCIUM CARBONATE\CHOLECALCIFEROL [Concomitant]
     Active Substance: CALCIUM CARBONATE\CHOLECALCIFEROL
  25. FOLIC ACID [Concomitant]
     Active Substance: FOLIC ACID
  26. CENTRUM SILVER [ASCORBIC ACID;BIOTIN;CALCIUM;CALCIUM PANTOTHENATE;CHLO [Concomitant]
  27. ZINC [Concomitant]
     Active Substance: ZINC
  28. BIOTIN [Concomitant]
     Active Substance: BIOTIN
  29. HERBALS\WITHANIA SOMNIFERA ROOT [Concomitant]
     Active Substance: HERBALS\WITHANIA SOMNIFERA ROOT
  30. KLONOPIN [Concomitant]
     Active Substance: CLONAZEPAM
  31. PROPRANOLOL [Concomitant]
     Active Substance: PROPRANOLOL HYDROCHLORIDE
  32. WELLBUTRIN [Concomitant]
     Active Substance: BUPROPION HYDROCHLORIDE
  33. VITAMIN B6 [Concomitant]
     Active Substance: PYRIDOXINE HYDROCHLORIDE
  34. CLONIDINE [Concomitant]
     Active Substance: CLONIDINE
  35. MIRAPEX [Concomitant]
     Active Substance: PRAMIPEXOLE DIHYDROCHLORIDE
  36. REMERON [Concomitant]
     Active Substance: MIRTAZAPINE
  37. MINERALS\VITAMINS [Concomitant]
     Active Substance: MINERALS\VITAMINS
  38. CRESTOR [Concomitant]
     Active Substance: ROSUVASTATIN CALCIUM
  39. ARTANE [Concomitant]
     Active Substance: TRIHEXYPHENIDYL HYDROCHLORIDE
  40. SUPER B [AMINO ACIDS NOS;MINERALS NOS;VITAMINS NOS] [Concomitant]
  41. ALPRAZOLAM [Concomitant]
     Active Substance: ALPRAZOLAM
  42. MODAFINIL [Concomitant]
     Active Substance: MODAFINIL

REACTIONS (19)
  - Seizure [Unknown]
  - Medical procedure [Unknown]
  - Depression [Not Recovered/Not Resolved]
  - Tardive dyskinesia [Unknown]
  - Arthritis [Unknown]
  - Brain fog [Unknown]
  - Lethargy [Unknown]
  - Bone density abnormal [Unknown]
  - Agitation [Unknown]
  - Vulvovaginal burning sensation [Unknown]
  - Pelvic floor dysfunction [Unknown]
  - Emotional distress [Unknown]
  - Akathisia [Not Recovered/Not Resolved]
  - Anxiety [Not Recovered/Not Resolved]
  - Dizziness [Unknown]
  - Fatigue [Unknown]
  - Somnolence [Not Recovered/Not Resolved]
  - Adverse drug reaction [Unknown]
  - Wrong technique in product usage process [Unknown]

NARRATIVE: CASE EVENT DATE: 20210101
